FAERS Safety Report 7725915-8 (Version None)
Quarter: 2011Q3

REPORT INFORMATION
  Report Type: 
  Country: None (occurrence: None)
  Receive Date: 20110902
  Receipt Date: 20110825
  Transmission Date: 20111222
  Serious: Yes (Other)
  Sender: FDA-Public Use
  Company Number: CA-JNJFOC-20110701457

PATIENT
  Sex: Male
  Weight: 62 kg

DRUGS (8)
  1. HYDROCORTISONE [Concomitant]
     Indication: PREMEDICATION
     Dates: start: 20110825
  2. APO-HYDROXYQUINE [Concomitant]
  3. PREVACID [Concomitant]
  4. METHOTREXATE SODIUM [Concomitant]
  5. REMICADE [Suspect]
     Indication: RHEUMATOID ARTHRITIS
     Route: 042
  6. LEFLUNOMIDE [Concomitant]
  7. REMICADE [Suspect]
     Dosage: PATIENT'S 5TH INFUSION
     Route: 042
     Dates: start: 20110630
  8. REMICADE [Suspect]
     Dosage: 6TH INFUSION
     Route: 042
     Dates: start: 20110825

REACTIONS (6)
  - TREMOR [None]
  - HEART RATE INCREASED [None]
  - INFUSION RELATED REACTION [None]
  - BLOOD PRESSURE DECREASED [None]
  - BLOOD PRESSURE INCREASED [None]
  - COUGH [None]
